FAERS Safety Report 4647779-1 (Version None)
Quarter: 2005Q2

REPORT INFORMATION
  Report Type: 
  Country: None (occurrence: None)
  Receive Date: 20050427
  Receipt Date: 20050427
  Transmission Date: 20051028
  Serious: Yes (Other)
  Sender: FDA-Public Use
  Company Number: None

PATIENT
  Sex: Male
  Weight: 80.2867 kg

DRUGS (5)
  1. DONEPEZIL HCL [Suspect]
     Indication: DEMENTIA ALZHEIMER'S TYPE
     Dosage: 10MG  DAILY  ORAL
     Route: 048
     Dates: start: 20040214, end: 20050111
  2. CYANOCOBALAMIN [Concomitant]
  3. DILTIAZEM -INWOOD- [Concomitant]
  4. OLANZAPINE [Concomitant]
  5. MEMANTINE HCL [Concomitant]

REACTIONS (1)
  - NIGHTMARE [None]
